FAERS Safety Report 4640309-X (Version None)
Quarter: 2005Q2

REPORT INFORMATION
  Report Type: 
  Country: None (occurrence: None)
  Receive Date: 20050420
  Receipt Date: 20040728
  Transmission Date: 20051028
  Serious: No
  Sender: FDA-Public Use
  Company Number: US-GLAXOSMITHKLINE-A0520099A

PATIENT
  Age: 45 Year
  Sex: Female

DRUGS (3)
  1. ESKALITH [Suspect]
     Dosage: 900MG AT NIGHT
     Route: 048
  2. RISPERDAL [Concomitant]
  3. COGENTIN [Concomitant]

REACTIONS (1)
  - ANTIPSYCHOTIC DRUG LEVEL BELOW THERAPEUTIC [None]
